FAERS Safety Report 15311192 (Version 1)
Quarter: 2018Q3

REPORT INFORMATION
  Report Type: Spontaneous
  Country: US (occurrence: US)
  Receive Date: 20180814
  Receipt Date: 20180814
  Transmission Date: 20181010
  Serious: Yes (Hospitalization)
  Sender: FDA-Public Use
  Company Number: None

PATIENT
  Age: 24 Year
  Sex: Female

DRUGS (4)
  1. PULMOZYME [Suspect]
     Active Substance: DORNASE ALFA
     Indication: CYSTIC FIBROSIS
     Route: 053
     Dates: start: 20180606
  2. KITABIS PAK [Concomitant]
     Active Substance: TOBRAMYCIN
  3. CAYSTON [Concomitant]
     Active Substance: AZTREONAM
  4. SODIUM CHLORIDE. [Concomitant]
     Active Substance: SODIUM CHLORIDE

REACTIONS (1)
  - Condition aggravated [None]

NARRATIVE: CASE EVENT DATE: 20180810
